FAERS Safety Report 4712218-9 (Version None)
Quarter: 2005Q3

REPORT INFORMATION
  Report Type: 
  Country: None (occurrence: None)
  Receive Date: 20050712
  Receipt Date: 20050704
  Transmission Date: 20060218
  Serious: Yes (Hospitalization)
  Sender: FDA-Public Use
  Company Number: PHBS2005BR09781

PATIENT
  Age: 55 Year
  Sex: Female

DRUGS (3)
  1. LEPONEX [Suspect]
     Indication: FORMICATION
     Dosage: 50 MG, BID
     Route: 048
     Dates: start: 20050611, end: 20050618
  2. LEPONEX [Suspect]
     Dosage: 25 MG, BID
     Route: 048
     Dates: start: 20050619, end: 20050628
  3. CARBOLITIUM [Suspect]
     Indication: FORMICATION
     Dosage: 300 MG, QD
     Route: 048
     Dates: start: 20050611, end: 20050628

REACTIONS (8)
  - BLOOD GLUCOSE INCREASED [None]
  - CONSTIPATION [None]
  - CONVULSION [None]
  - FAECAL INCONTINENCE [None]
  - FALL [None]
  - INFECTION [None]
  - URINARY INCONTINENCE [None]
  - WHITE BLOOD CELL COUNT INCREASED [None]
